FAERS Safety Report 7236651-9 (Version None)
Quarter: 2011Q1

REPORT INFORMATION
  Report Type: 
  Country: None (occurrence: None)
  Receive Date: 20110120
  Receipt Date: 20110113
  Transmission Date: 20110831
  Serious: Yes (Other)
  Sender: FDA-Public Use
  Company Number: TR-PFIZER INC-2011012149

PATIENT
  Age: 11 Year
  Sex: Male

DRUGS (2)
  1. SERTRALINE HYDROCHLORIDE [Suspect]
     Indication: DEPRESSION
     Dosage: UNK
  2. OLANZAPINE [Suspect]
     Indication: AGGRESSION
     Dosage: UNK

REACTIONS (3)
  - AGGRESSION [None]
  - CATATONIA [None]
  - DRUG INEFFECTIVE [None]
